FAERS Safety Report 13676514 (Version 1)
Quarter: 2017Q2

REPORT INFORMATION
  Report Type: Other
  Country: PT (occurrence: PT)
  Receive Date: 20170622
  Receipt Date: 20170622
  Transmission Date: 20170830
  Serious: Yes (Hospitalization, Other)
  Sender: FDA-Public Use
  Company Number: PT-AJANTA PHARMA USA INC.-2022384

PATIENT
  Age: 71 Year
  Sex: Female

DRUGS (8)
  1. SIMVASTATIN. [Concomitant]
     Active Substance: SIMVASTATIN
  2. DABIGATRAN [Concomitant]
     Active Substance: DABIGATRAN
  3. NEBIVOLOL. [Concomitant]
     Active Substance: NEBIVOLOL
  4. OMEPRAZOLE. [Concomitant]
     Active Substance: OMEPRAZOLE
  5. AMLODIPINE AND OLMESARTAN MEDOXOMIL (ANDA 207216) [Suspect]
     Active Substance: AMLODIPINE BESYLATE\OLMESARTAN MEDOXOMIL
     Indication: PRODUCT USED FOR UNKNOWN INDICATION
  6. OLMESARTAN MEDOXOMIL. [Concomitant]
     Active Substance: OLMESARTAN MEDOXOMIL
  7. PREDNISOLONE. [Concomitant]
     Active Substance: PREDNISOLONE
  8. RIVAROXABAN [Concomitant]
     Active Substance: RIVAROXABAN

REACTIONS (1)
  - Chronic pigmented purpura [Recovered/Resolved]

NARRATIVE: CASE EVENT DATE: 20161216
